FAERS Safety Report 7814492-9 (Version None)
Quarter: 2011Q4

REPORT INFORMATION
  Report Type: 
  Country: None (occurrence: None)
  Receive Date: 20111014
  Receipt Date: 20111014
  Transmission Date: 20120403
  Serious: Yes (Hospitalization, Other)
  Sender: FDA-Public Use
  Company Number: PHHO2008US13487

PATIENT
  Sex: Male
  Weight: 83.6 kg

DRUGS (1)
  1. GILENYA [Suspect]
     Indication: MULTIPLE SCLEROSIS
     Dosage: 1.25 MG, UNK
     Route: 048
     Dates: start: 20080916

REACTIONS (4)
  - AMNESIA [None]
  - BALANCE DISORDER [None]
  - SYNCOPE [None]
  - DISORIENTATION [None]
